FAERS Safety Report 7902395-0 (Version None)
Quarter: 2011Q4

REPORT INFORMATION
  Report Type: 
  Country: None (occurrence: None)
  Receive Date: 20111108
  Receipt Date: 20111102
  Transmission Date: 20120403
  Serious: Yes (Death, Other)
  Sender: FDA-Public Use
  Company Number: CA-PURDUE-CAN-2011-0002162

PATIENT
  Age: 69 Year
  Sex: Male

DRUGS (9)
  1. SENNA-MINT WAF [Concomitant]
     Dosage: 24 MG, BID
     Route: 048
  2. HYDROMORPH CONTIN 24 MG [Suspect]
     Indication: PAIN
     Dosage: 3 CAPSL, Q8H
     Route: 048
     Dates: start: 20110804, end: 20110816
  3. HALOPERIDOL [Concomitant]
     Indication: PRODUCT USED FOR UNKNOWN INDICATION
     Dosage: 0.5-1 MG, BID
     Route: 048
  4. HYDROMORPHONE HCL [Suspect]
     Indication: BREAKTHROUGH PAIN
     Dosage: 18-20 MG, Q1H PRN
     Route: 048
  5. METOCLOPRAMIDE [Concomitant]
     Indication: PRODUCT USED FOR UNKNOWN INDICATION
     Dosage: 10 MG, BID
     Route: 048
  6. RANITIDINE [Concomitant]
     Indication: PRODUCT USED FOR UNKNOWN INDICATION
     Dosage: 150 MG, BID
     Route: 048
  7. XALATAN [Concomitant]
     Indication: PRODUCT USED FOR UNKNOWN INDICATION
     Dosage: UNK
     Route: 047
  8. OXAZEPAM [Concomitant]
     Indication: PRODUCT USED FOR UNKNOWN INDICATION
     Dosage: 30 MG, HS
     Route: 048
  9. NICOTINE [Concomitant]
     Indication: PRODUCT USED FOR UNKNOWN INDICATION
     Dosage: UNK PATCH, UNK
     Route: 062

REACTIONS (2)
  - DRUG INEFFECTIVE [None]
  - DEATH [None]
